FAERS Safety Report 23889704 (Version 2)
Quarter: 2024Q2

REPORT INFORMATION
  Report Type: Spontaneous
  Country: DZ (occurrence: DZ)
  Receive Date: 20240523
  Receipt Date: 20240603
  Transmission Date: 20240715
  Serious: Yes (Death)
  Sender: FDA-Public Use
  Company Number: DZ-MYLANLABS-2024M1047082

PATIENT
  Age: 66 Year
  Sex: Male

DRUGS (2)
  1. CARBOPLATIN [Suspect]
     Active Substance: CARBOPLATIN
     Indication: Lung neoplasm malignant
     Dosage: UNK,
     Route: 065
     Dates: start: 20230917
  2. PEMETREXED [Suspect]
     Active Substance: PEMETREXED
     Indication: Lung neoplasm malignant
     Dosage: UNK,
     Route: 065
     Dates: start: 20230917

REACTIONS (3)
  - Leukopenia [Fatal]
  - Thrombocytopenia [Fatal]
  - Renal failure [Fatal]
